FAERS Safety Report 6392293-9 (Version None)
Quarter: 2009Q4

REPORT INFORMATION
  Report Type: 
  Country: None (occurrence: None)
  Receive Date: 20091007
  Receipt Date: 20090929
  Transmission Date: 20100525
  Serious: Yes (Death, Hospitalization)
  Sender: FDA-Public Use
  Company Number: TW-BAXTER-2009BH014286

PATIENT
  Sex: Female

DRUGS (2)
  1. DIANEAL [Suspect]
     Indication: PERITONEAL DIALYSIS
     Route: 033
     Dates: start: 20090901, end: 20090914
  2. DIANEAL [Suspect]
     Route: 033
     Dates: start: 20090801

REACTIONS (2)
  - LOWER GASTROINTESTINAL HAEMORRHAGE [None]
  - SEPTIC SHOCK [None]
